FAERS Safety Report 5750492-0 (Version None)
Quarter: 2008Q2

REPORT INFORMATION
  Report Type: 
  Country: None (occurrence: None)
  Receive Date: 20080528
  Receipt Date: 20070509
  Transmission Date: 20081010
  Serious: No
  Sender: FDA-Public Use
  Company Number: US-KINGPHARMUSA00001-K200700571

PATIENT

DRUGS (7)
  1. AVINZA [Suspect]
     Indication: BACK PAIN
     Dosage: 120 MG, QD
     Route: 048
     Dates: start: 20040101, end: 20060101
  2. AVINZA [Suspect]
     Dosage: 90 MG, QD
     Route: 048
     Dates: start: 20060101
  3. NEXIUM [Concomitant]
     Indication: STOMACH DISCOMFORT
     Dosage: 40 MG, QD
     Route: 048
     Dates: start: 20010101
  4. ZOLOFT [Concomitant]
     Dosage: 100 MG, QD
     Route: 048
     Dates: start: 20040101
  5. XANAX [Concomitant]
     Indication: INSOMNIA
     Dosage: 1 MG, BID
     Route: 048
     Dates: start: 20040101
  6. AMBIEN [Concomitant]
     Indication: INSOMNIA
     Dosage: 1 TAB, QD, HS
     Route: 048
     Dates: start: 20070501
  7. OPIOID [Concomitant]
     Indication: BREAKTHROUGH PAIN
     Dosage: 1 TAB, QD
     Route: 048
     Dates: start: 20070101

REACTIONS (2)
  - DRUG INEFFECTIVE [None]
  - HEADACHE [None]
